FAERS Safety Report 12415761 (Version 4)
Quarter: 2017Q1

REPORT INFORMATION
  Report Type: Spontaneous
  Country: DE (occurrence: DE)
  Receive Date: 20160530
  Receipt Date: 20170126
  Transmission Date: 20170428
  Serious: Yes (Other)
  Sender: FDA-Public Use
  Company Number: DE-ROCHE-1763247

PATIENT
  Age: 79 Year
  Sex: Female

DRUGS (5)
  1. ZELBORAF [Suspect]
     Active Substance: VEMURAFENIB
     Indication: METASTATIC MALIGNANT MELANOMA
     Route: 048
     Dates: start: 20140925, end: 20141002
  2. XARELTO [Concomitant]
     Active Substance: RIVAROXABAN
     Indication: HAEMODILUTION
     Route: 048
  3. ZELBORAF [Suspect]
     Active Substance: VEMURAFENIB
     Route: 048
     Dates: start: 201410, end: 201605
  4. ZELBORAF [Suspect]
     Active Substance: VEMURAFENIB
     Route: 048
     Dates: start: 20160812, end: 20160920
  5. COTELLIC [Suspect]
     Active Substance: COBIMETINIB
     Indication: PRODUCT USED FOR UNKNOWN INDICATION
     Route: 065

REACTIONS (21)
  - Squamous cell carcinoma [Unknown]
  - Pleural effusion [Unknown]
  - Nausea [Recovered/Resolved]
  - Neoplasm [Unknown]
  - Oedema peripheral [Unknown]
  - Hypokalaemia [Unknown]
  - Listless [Unknown]
  - Ill-defined disorder [Unknown]
  - Rash pustular [Recovered/Resolved]
  - Tumour marker increased [Unknown]
  - Visual field defect [Unknown]
  - Electrocardiogram QT prolonged [Unknown]
  - Haemangioma of liver [Recovered/Resolved with Sequelae]
  - Pain [Recovered/Resolved]
  - Urinary tract infection [Unknown]
  - General physical health deterioration [Unknown]
  - Palmar-plantar erythrodysaesthesia syndrome [Recovered/Resolved with Sequelae]
  - Diffuse alopecia [Unknown]
  - Solar dermatitis [Unknown]
  - Decreased appetite [Recovered/Resolved]
  - Ill-defined disorder [Recovered/Resolved with Sequelae]

NARRATIVE: CASE EVENT DATE: 20140925
